FAERS Safety Report 21145877 (Version 1)
Quarter: 2022Q3

REPORT INFORMATION
  Report Type: Spontaneous
  Country: US (occurrence: US)
  Receive Date: 20220729
  Receipt Date: 20220729
  Transmission Date: 20221027
  Serious: Yes (Other)
  Sender: FDA-Public Use
  Company Number: US-NOVOPROD-941813

PATIENT
  Sex: Female

DRUGS (1)
  1. NOVOLOG [Suspect]
     Active Substance: INSULIN ASPART
     Indication: Product used for unknown indication
     Dosage: ACCORDING TO BLOOD SUGAR READINGS AS NEEDED
     Route: 058

REACTIONS (3)
  - Cardiac operation [Unknown]
  - Infection [Unknown]
  - Memory impairment [Unknown]

NARRATIVE: CASE EVENT DATE: 20211101
